FAERS Safety Report 13617601 (Version 1)
Quarter: 2017Q2

REPORT INFORMATION
  Report Type: Spontaneous
  Country: US (occurrence: US)
  Receive Date: 20170606
  Receipt Date: 20170606
  Transmission Date: 20170830
  Serious: No
  Sender: FDA-Public Use
  Company Number: US-SA-2017SA048156

PATIENT
  Age: 68 Year
  Sex: Female

DRUGS (14)
  1. APIDRA SOLOSTAR [Suspect]
     Active Substance: INSULIN GLULISINE
     Indication: TYPE 2 DIABETES MELLITUS
     Dosage: DOSAGE SLIDING SCALE?FREQUENCY MEAL TIME
     Route: 065
     Dates: start: 201604
  2. LANTUS SOLOSTAR [Suspect]
     Active Substance: INSULIN GLARGINE
     Indication: TYPE 2 DIABETES MELLITUS
     Route: 065
  3. APIDRA SOLOSTAR [Suspect]
     Active Substance: INSULIN GLULISINE
     Indication: TYPE 2 DIABETES MELLITUS
     Dosage: DOSAGE SLIDING SCALE?FREQUENCY MEAL TIME
     Route: 065
     Dates: start: 201604
  4. APIDRA SOLOSTAR [Suspect]
     Active Substance: INSULIN GLULISINE
     Indication: TYPE 2 DIABETES MELLITUS
     Dosage: DOSAGE SLIDING SCALE?FREQUENCY MEAL TIME
     Route: 065
     Dates: start: 201604
  5. SOLOSTAR [Concomitant]
     Active Substance: DEVICE
     Dates: start: 201604
  6. SOLOSTAR [Concomitant]
     Active Substance: DEVICE
     Dates: start: 201604
  7. APIDRA SOLOSTAR [Suspect]
     Active Substance: INSULIN GLULISINE
     Indication: TYPE 2 DIABETES MELLITUS
     Dosage: DOSAGE SLIDING SCALE?FREQUENCY MEAL TIME
     Route: 065
     Dates: start: 201604
  8. SOLOSTAR [Concomitant]
     Active Substance: DEVICE
     Dates: start: 201604
  9. SOLOSTAR [Concomitant]
     Active Substance: DEVICE
     Dates: start: 201604
  10. SOLOSTAR [Concomitant]
     Active Substance: DEVICE
     Dates: start: 201604
  11. APIDRA SOLOSTAR [Suspect]
     Active Substance: INSULIN GLULISINE
     Indication: TYPE 2 DIABETES MELLITUS
     Dosage: DOSAGE SLIDING SCALE?FREQUENCY MEAL TIME
     Route: 065
     Dates: start: 201604
  12. SOLOSTAR [Concomitant]
     Active Substance: DEVICE
  13. SOLOSTAR [Concomitant]
     Active Substance: DEVICE
     Dates: start: 201604
  14. APIDRA SOLOSTAR [Suspect]
     Active Substance: INSULIN GLULISINE
     Indication: TYPE 2 DIABETES MELLITUS
     Dosage: DOSAGE SLIDING SCALE?FREQUENCY MEAL TIME
     Route: 065
     Dates: start: 201604

REACTIONS (3)
  - Blood glucose increased [Unknown]
  - Dyspnoea [Unknown]
  - Drug ineffective [Unknown]
